FAERS Safety Report 8969044 (Version 1)
Quarter: 2012Q4

REPORT INFORMATION
  Report Type: 
  Country: US (occurrence: US)
  Receive Date: 20121218
  Receipt Date: 20121218
  Transmission Date: 20130627
  Serious: No
  Sender: FDA-Public Use
  Company Number: US-BRISTOL-MYERS SQUIBB COMPANY-16696726

PATIENT
  Age: 78 Year
  Sex: Male
  Weight: 79 kg

DRUGS (3)
  1. ABILIFY TABS 5 MG [Suspect]
     Indication: DEPRESSION
     Dates: start: 20120604
  2. ABILIFY TABS 5 MG [Suspect]
     Indication: INSOMNIA
     Dates: start: 20120604
  3. RAMIPRIL [Concomitant]

REACTIONS (3)
  - Asthenia [Recovered/Resolved]
  - Nervousness [Recovered/Resolved]
  - Feeling abnormal [Recovered/Resolved]
